FAERS Safety Report 10314685 (Version 1)
Quarter: 2014Q3

REPORT INFORMATION
  Report Type: Spontaneous
  Country: US (occurrence: None)
  Receive Date: 20140717
  Receipt Date: 20140717
  Transmission Date: 20150326
  Serious: Yes (Hospitalization, Other)
  Sender: FDA-Public Use
  Company Number: 54973 AE # 1551

PATIENT
  Age: 18 Month
  Sex: Female

DRUGS (2)
  1. UNKNOWN NAUSEA AND VOMITING MEDICATION [Concomitant]
  2. BABY TEETHING [Suspect]
     Active Substance: ARABICA COFFEE BEAN\ATROPA BELLADONNA\CALCIUM PHOSPHATE\CHAMOMILE
     Indication: TEETHING
     Dosage: INTERMITTENTLY Q 3-4 HOURS

REACTIONS (3)
  - Nausea [None]
  - Convulsion [None]
  - Vomiting [None]

NARRATIVE: CASE EVENT DATE: 201310
